FAERS Safety Report 12686788 (Version 2)
Quarter: 2018Q4

REPORT INFORMATION
  Report Type: Spontaneous
  Country: US (occurrence: US)
  Receive Date: 20160825
  Receipt Date: 20181026
  Transmission Date: 20190204
  Serious: No
  Sender: FDA-Public Use
  Company Number: US-JAZZ-2016-US-007144

PATIENT
  Sex: Female

DRUGS (49)
  1. LORAZEPAM. [Concomitant]
     Active Substance: LORAZEPAM
  2. BORON CITRATE [Concomitant]
  3. FEXOFENADINE HCL [Concomitant]
     Active Substance: FEXOFENADINE HYDROCHLORIDE
  4. MODAFINIL. [Concomitant]
     Active Substance: MODAFINIL
  5. ACETYLSALICYLIC ACID [Concomitant]
     Active Substance: ASPIRIN
  6. BIOTIN [Concomitant]
     Active Substance: BIOTIN
  7. LEVOTHYROXINE SODIUM. [Concomitant]
     Active Substance: LEVOTHYROXINE SODIUM
  8. ZINC GLUCONATE [Concomitant]
     Active Substance: ZINC GLUCONATE
  9. CLONAZEPAM. [Concomitant]
     Active Substance: CLONAZEPAM
  10. CELEBREX [Concomitant]
     Active Substance: CELECOXIB
  11. GLUCOSAMINE AND CHONDROITIN [Concomitant]
     Active Substance: CHONDROITIN SULFATE (BOVINE)\GLUCOSAMINE HYDROCHLORIDE
  12. SUPER B COMPLEX WITH C [Concomitant]
  13. TOPAMAX [Concomitant]
     Active Substance: TOPIRAMATE
  14. FENOFIBRATE. [Concomitant]
     Active Substance: FENOFIBRATE
  15. ALENDRONATE SODIUM. [Concomitant]
     Active Substance: ALENDRONATE SODIUM
  16. ATORVASTATIN CALCIUM. [Concomitant]
     Active Substance: ATORVASTATIN CALCIUM
  17. CHROMIUM PICOLINATE [Concomitant]
     Active Substance: CHROMIUM PICOLINATE
  18. CYCLOBENZAPRINE HYDROCHLORIDE. [Concomitant]
     Active Substance: CYCLOBENZAPRINE HYDROCHLORIDE
  19. FERROUS SULFATE. [Concomitant]
     Active Substance: FERROUS SULFATE
  20. ARGININE HYDROCHLORIDE [Concomitant]
     Active Substance: ARGININE HYDROCHLORIDE
  21. NASACORT [Concomitant]
     Active Substance: TRIAMCINOLONE ACETONIDE
  22. VITAMIN D3 [Concomitant]
     Active Substance: CHOLECALCIFEROL
  23. ZANTAC [Concomitant]
     Active Substance: RANITIDINE HYDROCHLORIDE
  24. SALBUTAMOL SULFATE [Concomitant]
     Active Substance: ALBUTEROL SULFATE
  25. CYMBALTA [Concomitant]
     Active Substance: DULOXETINE HYDROCHLORIDE
  26. ASCORBIC ACID. [Concomitant]
     Active Substance: ASCORBIC ACID
  27. XYREM [Suspect]
     Active Substance: SODIUM OXYBATE
     Dosage: 4 G, BID
     Route: 048
     Dates: start: 201208
  28. VESICARE [Suspect]
     Active Substance: SOLIFENACIN SUCCINATE
     Indication: PRODUCT USED FOR UNKNOWN INDICATION
  29. HYDROXYZINE HYDROCHLORIDE. [Concomitant]
     Active Substance: HYDROXYZINE HYDROCHLORIDE
  30. LORATADINE. [Concomitant]
     Active Substance: LORATADINE
  31. FIBERCON [Concomitant]
     Active Substance: CALCIUM POLYCARBOPHIL
  32. FISH OIL [Concomitant]
     Active Substance: FISH OIL
  33. GEMFIBROZIL. [Concomitant]
     Active Substance: GEMFIBROZIL
  34. PANTOPRAZOLE SODIUM. [Concomitant]
     Active Substance: PANTOPRAZOLE SODIUM
  35. CHLORZOXAZONE. [Concomitant]
     Active Substance: CHLORZOXAZONE
  36. PALIPERIDONE. [Concomitant]
     Active Substance: PALIPERIDONE
  37. METOCLOPRAMIDE HYDROCHLORIDE. [Concomitant]
     Active Substance: METOCLOPRAMIDE HYDROCHLORIDE
  38. MIRAPEX [Concomitant]
     Active Substance: PRAMIPEXOLE DIHYDROCHLORIDE
  39. ROPINIROLE HCL [Concomitant]
     Active Substance: ROPINIROLE HYDROCHLORIDE
  40. SPIRIVA [Concomitant]
     Active Substance: TIOTROPIUM BROMIDE MONOHYDRATE
  41. TYLENOL EXTRA STRENGTH [Concomitant]
     Active Substance: ACETAMINOPHEN
  42. XYREM [Suspect]
     Active Substance: SODIUM OXYBATE
     Indication: NARCOLEPSY
     Dosage: 2.25 G, BID
     Route: 048
     Dates: start: 200809, end: 200810
  43. XYREM [Suspect]
     Active Substance: SODIUM OXYBATE
     Dosage: DOSE ADJUSTMENTS
     Route: 048
  44. BUDEPRION [Suspect]
     Active Substance: BUPROPION HYDROCHLORIDE
     Indication: PRODUCT USED FOR UNKNOWN INDICATION
  45. FUROSEMIDE. [Concomitant]
     Active Substance: FUROSEMIDE
  46. MAGNESIUM OXIDE. [Concomitant]
     Active Substance: MAGNESIUM OXIDE
  47. TIZANIDINE HCL [Concomitant]
     Active Substance: TIZANIDINE HYDROCHLORIDE
  48. GABAPENTIN. [Concomitant]
     Active Substance: GABAPENTIN
  49. RETINOL [Concomitant]
     Active Substance: RETINOL

REACTIONS (9)
  - Skin disorder [Unknown]
  - Bladder disorder [Recovering/Resolving]
  - Somnolence [Unknown]
  - Furuncle [Unknown]
  - Feeling abnormal [Unknown]
  - Pre-existing condition improved [Unknown]
  - Ankle fracture [Unknown]
  - Pruritus [Unknown]
  - Weight decreased [Unknown]
